FAERS Safety Report 6072920-6 (Version None)
Quarter: 2009Q1

REPORT INFORMATION
  Report Type: 
  Country: None (occurrence: None)
  Receive Date: 20090206
  Receipt Date: 20090109
  Transmission Date: 20090719
  Serious: Yes (Other)
  Sender: FDA-Public Use
  Company Number: 236178J08USA

PATIENT
  Age: 26 Year
  Sex: Male

DRUGS (6)
  1. REBIF [Suspect]
     Indication: OFF LABEL USE
     Dosage: 44 MCG, 3 IN 1 WEEKS, SUBCUTANEOUS
     Route: 058
     Dates: start: 20080523
  2. COUMADIN [Concomitant]
  3. DILANTIN [Concomitant]
  4. METHYLPREDNISOLONE 16MG TAB [Concomitant]
  5. TOPAMAX [Concomitant]
  6. ZANAFLEX [Concomitant]

REACTIONS (4)
  - ANTICONVULSANT DRUG LEVEL DECREASED [None]
  - CONVULSION [None]
  - DROOLING [None]
  - OFF LABEL USE [None]
